FAERS Safety Report 4384527-7 (Version None)
Quarter: 2004Q2

REPORT INFORMATION
  Report Type: 
  Country: None (occurrence: None)
  Receive Date: 20040610
  Receipt Date: 20040331
  Transmission Date: 20050107
  Serious: Yes (Hospitalization)
  Sender: FDA-Public Use
  Company Number: A03200401017

PATIENT
  Age: 68 Year
  Sex: Male
  Weight: 89.3586 kg

DRUGS (3)
  1. ELOXATIN [Suspect]
     Indication: COLORECTAL CANCER
     Dosage: 120 MG Q2W - INTRAVENOUS NOS
     Route: 042
     Dates: start: 20040326, end: 20040326
  2. DOLASETRON MESILATE [Concomitant]
  3. DEXAMETHASONE TAB [Concomitant]

REACTIONS (4)
  - BLOOD PRESSURE INCREASED [None]
  - CHEST DISCOMFORT [None]
  - DYSPNOEA [None]
  - HEART RATE INCREASED [None]
